FAERS Safety Report 24123042 (Version 2)
Quarter: 2025Q1

REPORT INFORMATION
  Report Type: Spontaneous
  Country: FR (occurrence: FR)
  Receive Date: 20240723
  Receipt Date: 20250322
  Transmission Date: 20250408
  Serious: Yes (Other)
  Sender: AUROBINDO
  Company Number: FR-BIOGARAN-B24001145

PATIENT
  Age: 33 Year
  Sex: Female

DRUGS (2)
  1. TRAMADOL [Suspect]
     Active Substance: TRAMADOL
     Indication: Product used for unknown indication
     Dosage: 1100 MILLIGRAM, ONCE A DAY (2 TABLETS WERE REDUCED)
     Route: 065
  2. TRAMADOL [Suspect]
     Active Substance: TRAMADOL
     Dosage: 1300 MILLIGRAM, ONCE A DAY (7 TABLETS IN THE MORNING AND 6 TABLETS AT NIGHT)
     Route: 065

REACTIONS (5)
  - Drug withdrawal convulsions [Unknown]
  - Drug use disorder [Unknown]
  - Affective disorder [Unknown]
  - Prescribed overdose [Unknown]
  - Off label use [Unknown]
